FAERS Safety Report 16691314 (Version 2)
Quarter: 2020Q1

REPORT INFORMATION
  Report Type: Spontaneous
  Country: US (occurrence: US)
  Receive Date: 20190812
  Receipt Date: 20200311
  Transmission Date: 20200409
  Serious: No
  Sender: FDA-Public Use
  Company Number: US-ORPHAN EUROPE-2073025

PATIENT
  Age: 9 Year
  Sex: Male

DRUGS (4)
  1. CARBAGLU [Suspect]
     Active Substance: CARGLUMIC ACID
     Route: 065
     Dates: start: 20151125
  2. CARBAGLU [Suspect]
     Active Substance: CARGLUMIC ACID
     Indication: CARNITINE-ACYLCARNITINE TRANSLOCASE DEFICIENCY
     Route: 065
     Dates: start: 20190326
  3. BUPHENYL [Concomitant]
     Active Substance: SODIUM PHENYLBUTYRATE
  4. SODIUM BENZOATE [Concomitant]
     Active Substance: SODIUM BENZOATE

REACTIONS (2)
  - Diarrhoea [Unknown]
  - Off label use [Unknown]

NARRATIVE: CASE EVENT DATE: 20190326
